FAERS Safety Report 11191858 (Version 1)
Quarter: 2015Q2

REPORT INFORMATION
  Report Type: Report from Study
  Country: MY (occurrence: MY)
  Receive Date: 20150616
  Receipt Date: 20150616
  Transmission Date: 20150821
  Serious: Yes (Hospitalization, Other)
  Sender: FDA-Public Use
  Company Number: MY-EMD SERONO-7268558

PATIENT
  Age: 44 Year
  Sex: Female

DRUGS (1)
  1. REBIF [Suspect]
     Active Substance: INTERFERON BETA-1A
     Indication: MULTIPLE SCLEROSIS
     Dates: start: 2010

REACTIONS (9)
  - Paraplegia [Unknown]
  - Palliative care [Unknown]
  - Aphasia [Unknown]
  - Cardiac disorder [Unknown]
  - Pneumonia [Unknown]
  - Bedridden [Unknown]
  - Cystitis [Unknown]
  - Multiple sclerosis relapse [Unknown]
  - Pyrexia [Unknown]

NARRATIVE: CASE EVENT DATE: 20121102
